FAERS Safety Report 19022877 (Version 2)
Quarter: 2021Q1

REPORT INFORMATION
  Report Type: Report from Study
  Country: US (occurrence: US)
  Receive Date: 20210318
  Receipt Date: 20210329
  Transmission Date: 20210420
  Serious: Yes (Death, Hospitalization, Congenital Anomaly, Other)
  Sender: FDA-Public Use
  Company Number: US-AUROBINDO-AUR-APL-2021-010287

PATIENT
  Sex: Male
  Weight: 7.71 kg

DRUGS (6)
  1. LEXAPRO [Suspect]
     Active Substance: ESCITALOPRAM OXALATE
     Indication: DEPRESSION
     Dosage: UNK, BEFORE LMP ? DELIVERY
     Route: 064
  2. SEROQUEL [Suspect]
     Active Substance: QUETIAPINE FUMARATE
     Indication: INSOMNIA
     Dosage: UNK, BEFORE LMP ? DELIVERY
     Route: 064
  3. METFORMIN [Suspect]
     Active Substance: METFORMIN HYDROCHLORIDE
     Indication: POLYCYSTIC OVARIES
     Dosage: UNK, BEFORE LMP ? DELIVERY
     Route: 064
  4. WELLBUTRIN [Suspect]
     Active Substance: BUPROPION HYDROCHLORIDE
     Indication: DEPRESSION
     Dosage: UNK, 1 WEEK BEFORE CONCEPTION ? DELIVERY
     Route: 064
  5. LEXAPRO [Suspect]
     Active Substance: ESCITALOPRAM OXALATE
     Indication: ANXIETY
  6. WELLBUTRIN [Suspect]
     Active Substance: BUPROPION HYDROCHLORIDE
     Indication: ANXIETY

REACTIONS (21)
  - Congenital anomaly of inner ear [Fatal]
  - Foetal exposure during pregnancy [Unknown]
  - Hypospadias [Fatal]
  - Premature baby [Fatal]
  - Joint ankylosis [Fatal]
  - Trismus [Fatal]
  - Brain stem syndrome [Fatal]
  - Bradycardia [Fatal]
  - Micrognathia [Fatal]
  - Dysplasia [Fatal]
  - Ossiculoplasty [Fatal]
  - Respiratory distress [Fatal]
  - Anomaly of external ear congenital [Fatal]
  - Dandy-Walker syndrome [Fatal]
  - Anomaly of middle ear congenital [Fatal]
  - Deafness [Fatal]
  - Microtia [Fatal]
  - Spinal column injury [Fatal]
  - Vestibular disorder [Fatal]
  - Hydrocephalus [Fatal]
  - External auditory canal atresia [Fatal]

NARRATIVE: CASE EVENT DATE: 20190705
